FAERS Safety Report 16415550 (Version 1)
Quarter: 2019Q2

REPORT INFORMATION
  Report Type: Spontaneous
  Country: US (occurrence: US)
  Receive Date: 20190611
  Receipt Date: 20190611
  Transmission Date: 20190711
  Serious: No
  Sender: FDA-Public Use
  Company Number: US-SA-2019SA154558

PATIENT
  Age: 16 Year
  Sex: Male

DRUGS (1)
  1. LANTUS SOLOSTAR [Suspect]
     Active Substance: INSULIN GLARGINE
     Indication: TYPE 1 DIABETES MELLITUS
     Dosage: 21 U, QD
     Route: 065

REACTIONS (3)
  - Blood glucose increased [Unknown]
  - Malaise [Unknown]
  - Incorrect dose administered by device [Unknown]
